FAERS Safety Report 14168762 (Version 1)
Quarter: 2017Q4

REPORT INFORMATION
  Report Type: Spontaneous
  Country: CH (occurrence: CH)
  Receive Date: 20171107
  Receipt Date: 20171107
  Transmission Date: 20180321
  Serious: Yes (Disabling)
  Sender: FDA-Public Use
  Company Number: CH-SUNOVION-2017SUN004311

PATIENT

DRUGS (4)
  1. LATUDA [Suspect]
     Active Substance: LURASIDONE HYDROCHLORIDE
     Indication: SCHIZOPHRENIA
     Dosage: 40 MG, QD
     Route: 048
     Dates: start: 201501, end: 201611
  2. ZOPICLONE [Concomitant]
     Active Substance: ZOPICLONE
     Indication: SLEEP DISORDER
     Route: 065
     Dates: start: 201601, end: 201611
  3. LATUDA [Suspect]
     Active Substance: LURASIDONE HYDROCHLORIDE
     Dosage: 80 MG, QD
     Route: 048
     Dates: start: 201501, end: 201611
  4. AGOMELATIN [Concomitant]
     Active Substance: AGOMELATINE
     Indication: SLEEP DISORDER
     Dates: start: 201504, end: 201510

REACTIONS (4)
  - Nausea [Recovered/Resolved]
  - Drug ineffective [Unknown]
  - Schizophrenia [Unknown]
  - Insomnia [Recovering/Resolving]
